FAERS Safety Report 8308708-2 (Version None)
Quarter: 2012Q2

REPORT INFORMATION
  Report Type: 
  Country: None (occurrence: None)
  Receive Date: 20120424
  Receipt Date: 20120416
  Transmission Date: 20120825
  Serious: Yes (Hospitalization, Other)
  Sender: FDA-Public Use
  Company Number: US-CELGENEUS-163-21880-12041458

PATIENT
  Sex: Female

DRUGS (13)
  1. IRON [Concomitant]
     Route: 065
  2. ALLOPURINOL [Concomitant]
     Route: 065
  3. CO Q 10 [Concomitant]
     Route: 065
  4. METOPROLOL SUCCINATE [Concomitant]
     Route: 065
  5. MULTI-VITAMINS [Concomitant]
     Route: 065
  6. FOLIC ACID [Concomitant]
     Route: 065
  7. PRANDIN [Concomitant]
     Route: 065
  8. REVLIMID [Suspect]
     Dosage: 5 MILLIGRAM
     Route: 048
     Dates: start: 20120322
  9. LASIX [Concomitant]
     Route: 065
  10. LANTUS [Concomitant]
     Route: 065
  11. DILTIAZEM HCL [Concomitant]
     Route: 065
  12. FERROUS SULFATE TAB [Concomitant]
     Route: 065
  13. LUTEIN [Concomitant]
     Route: 065

REACTIONS (9)
  - DYSPNOEA [None]
  - DIABETES MELLITUS [None]
  - HYPERTENSION [None]
  - CARDIAC FAILURE CONGESTIVE [None]
  - RASH [None]
  - PNEUMONIA [None]
  - FULL BLOOD COUNT DECREASED [None]
  - ANAEMIA HAEMOLYTIC AUTOIMMUNE [None]
  - ATRIAL FIBRILLATION [None]
